FAERS Safety Report 25660652 (Version 2)
Quarter: 2025Q3

REPORT INFORMATION
  Report Type: Spontaneous
  Country: CN (occurrence: CN)
  Receive Date: 20250808
  Receipt Date: 20250916
  Transmission Date: 20251020
  Serious: Yes (Hospitalization)
  Sender: MERCK SHARP & DOHME LLC
  Company Number: CN-SICHUAN KELUNBIOTECH BIOPHARMACEUTICAL CO. LTD.-2025KB000158

PATIENT
  Age: 89 Year
  Sex: Male
  Weight: 42 kg

DRUGS (3)
  1. SACITUZUMAB TIRUMOTECAN [Suspect]
     Active Substance: SACITUZUMAB TIRUMOTECAN
     Indication: Lung adenocarcinoma stage IV
     Route: 041
     Dates: start: 20250619, end: 20250619
  2. SACITUZUMAB TIRUMOTECAN [Suspect]
     Active Substance: SACITUZUMAB TIRUMOTECAN
     Indication: Lung adenocarcinoma stage IV
     Route: 041
     Dates: start: 20250709, end: 20250709
  3. 0.9% Sodium Chloride Injection 250ml [Concomitant]
     Indication: Medication dilution
     Route: 041
     Dates: start: 20250616, end: 20250616

REACTIONS (1)
  - Myelosuppression [Recovering/Resolving]

NARRATIVE: CASE EVENT DATE: 20250704
